FAERS Safety Report 8548438 (Version 15)
Quarter: 2014Q1

REPORT INFORMATION
  Report Type: Report from Study
  Country: CA (occurrence: CA)
  Receive Date: 20120507
  Receipt Date: 20140108
  Transmission Date: 20141002
  Serious: Yes (Other)
  Sender: FDA-Public Use
  Company Number: PHHY2012CA009408

PATIENT
  Sex: Male

DRUGS (3)
  1. SANDOSTATIN LAR [Suspect]
     Indication: NEUROENDOCRINE TUMOUR
     Dosage: 30 MG, EVERY 4 WEEKS
     Route: 030
     Dates: start: 20120202
  2. SPIRONOLACTONE [Concomitant]
     Dosage: UNK UKN, UNK
  3. TOLOXIN//DIGOXIN [Concomitant]
     Dosage: UNK UKN, UNK

REACTIONS (5)
  - Hepatic neoplasm [Unknown]
  - Anal fissure [Unknown]
  - Pulmonary mass [Unknown]
  - Blood pressure increased [Unknown]
  - Heart rate irregular [Unknown]
